FAERS Safety Report 5187302-9 (Version None)
Quarter: 2006Q4

REPORT INFORMATION
  Report Type: 
  Country: None (occurrence: None)
  Receive Date: 20061220
  Receipt Date: 20051130
  Transmission Date: 20070319
  Serious: No
  Sender: FDA-Public Use
  Company Number: US-AMGEN-US159589

PATIENT
  Sex: Female
  Weight: 45.4 kg

DRUGS (4)
  1. ENBREL [Suspect]
     Indication: RHEUMATOID ARTHRITIS
     Route: 065
     Dates: start: 20050301, end: 20051101
  2. SYNTHROID [Concomitant]
     Route: 065
  3. PREMARIN [Concomitant]
     Route: 065
  4. IBUPROFEN [Concomitant]
     Route: 065

REACTIONS (3)
  - BASEDOW'S DISEASE [None]
  - EYE SWELLING [None]
  - LACRIMATION INCREASED [None]
